FAERS Safety Report 21269459 (Version 1)
Quarter: 2022Q3

REPORT INFORMATION
  Report Type: Spontaneous
  Country: CN (occurrence: CN)
  Receive Date: 20220830
  Receipt Date: 20220830
  Transmission Date: 20221026
  Serious: Yes (Life-Threatening)
  Sender: FDA-Public Use
  Company Number: CN-BAYER-2022A116648

PATIENT
  Age: 72 Year
  Sex: Female

DRUGS (2)
  1. AVELOX [Suspect]
     Active Substance: MOXIFLOXACIN HYDROCHLORIDE
     Indication: Pneumonia
     Dosage: 0.4 G, QD
     Route: 048
     Dates: start: 20220723, end: 20220723
  2. AVELOX [Suspect]
     Active Substance: MOXIFLOXACIN HYDROCHLORIDE
     Indication: Anti-infective therapy

REACTIONS (8)
  - Respiratory alkalosis [Recovering/Resolving]
  - Rash erythematous [Recovering/Resolving]
  - Dysphoria [Recovering/Resolving]
  - Hyperhidrosis [Recovering/Resolving]
  - Suffocation feeling [Recovering/Resolving]
  - Chest discomfort [Recovering/Resolving]
  - Hyperventilation [Recovering/Resolving]
  - Tachypnoea [Recovering/Resolving]

NARRATIVE: CASE EVENT DATE: 20220723
